FAERS Safety Report 19971408 (Version 1)
Quarter: 2021Q4

REPORT INFORMATION
  Report Type: Spontaneous
  Country: SA (occurrence: SA)
  Receive Date: 20211020
  Receipt Date: 20211020
  Transmission Date: 20220303
  Serious: Yes (Other)
  Sender: FDA-Public Use
  Company Number: SA-SUN PHARMACEUTICAL INDUSTRIES LTD-2021RR-314811

PATIENT
  Age: 39 Year
  Sex: Male

DRUGS (3)
  1. WARFARIN [Suspect]
     Active Substance: WARFARIN
     Indication: Lupus endocarditis
     Dosage: UNK
     Route: 065
  2. ASPIRIN [Suspect]
     Active Substance: ASPIRIN
     Indication: Lupus endocarditis
     Dosage: UNK
     Route: 065
  3. HYDROXYCHLOROQUINE [Suspect]
     Active Substance: HYDROXYCHLOROQUINE
     Indication: Lupus endocarditis
     Dosage: 400 MILLIGRAM, DAILY
     Route: 065

REACTIONS (4)
  - Intraocular pressure increased [Unknown]
  - Hyphaema [Unknown]
  - Vitreous haemorrhage [Unknown]
  - Choroidal haemorrhage [Unknown]
